FAERS Safety Report 16123071 (Version 1)
Quarter: 2019Q1

REPORT INFORMATION
  Report Type: Spontaneous
  Country: MY (occurrence: MY)
  Receive Date: 20190327
  Receipt Date: 20190327
  Transmission Date: 20190418
  Serious: Yes (Hospitalization, Other)
  Sender: FDA-Public Use
  Company Number: MY-B.I. PHARMACEUTICALS,INC./RIDGEFIELD-2019-BI-012813

PATIENT
  Age: 70 Year
  Sex: Male

DRUGS (5)
  1. PRADAXA [Suspect]
     Active Substance: DABIGATRAN ETEXILATE MESYLATE
     Indication: ATRIAL FIBRILLATION
     Route: 048
     Dates: start: 20181220, end: 20190319
  2. CARDIPIRINA [Suspect]
     Active Substance: ASPIRIN
     Indication: ACUTE MYOCARDIAL INFARCTION
     Route: 065
     Dates: start: 20181220, end: 20190319
  3. ASA [Concomitant]
     Active Substance: ASPIRIN
     Indication: PRODUCT USED FOR UNKNOWN INDICATION
     Route: 065
  4. CLOPIDOGREL [Suspect]
     Active Substance: CLOPIDOGREL BISULFATE
     Indication: ACUTE MYOCARDIAL INFARCTION
     Route: 065
     Dates: start: 20190208, end: 20190319
  5. SERTRALINE [Concomitant]
     Active Substance: SERTRALINE HYDROCHLORIDE
     Indication: ADJUSTMENT DISORDER WITH DEPRESSED MOOD
     Route: 065

REACTIONS (11)
  - Coagulopathy [Recovered/Resolved]
  - Haemorrhagic anaemia [Recovered/Resolved]
  - Adjustment disorder with depressed mood [Unknown]
  - Acute myocardial infarction [Unknown]
  - Fall [Unknown]
  - Upper gastrointestinal haemorrhage [Recovered/Resolved]
  - Short-bowel syndrome [Unknown]
  - Gastrointestinal stoma complication [Unknown]
  - Benign prostatic hyperplasia [Unknown]
  - Bacteraemia [Unknown]
  - Acute kidney injury [Recovered/Resolved]

NARRATIVE: CASE EVENT DATE: 20190319
